FAERS Safety Report 11661533 (Version 2)
Quarter: 2015Q4

REPORT INFORMATION
  Report Type: Report from Study
  Country: FR (occurrence: FR)
  Receive Date: 20151026
  Receipt Date: 20151116
  Transmission Date: 20160304
  Serious: Yes (Other)
  Sender: FDA-Public Use
  Company Number: FR-GILEAD-2015-0178739

PATIENT
  Age: 74 Year
  Sex: Female

DRUGS (1)
  1. IDELALISIB [Suspect]
     Active Substance: IDELALISIB
     Indication: B-CELL LYMPHOMA
     Dosage: 150 MG, BID
     Route: 048
     Dates: start: 20150216, end: 20150815

REACTIONS (4)
  - Cytopenia [Recovered/Resolved]
  - Unevaluable event [Recovered/Resolved]
  - Disease progression [Unknown]
  - Thrombocytopenia [Recovered/Resolved]
